FAERS Safety Report 7703359-2 (Version None)
Quarter: 2011Q3

REPORT INFORMATION
  Report Type: 
  Country: None (occurrence: None)
  Receive Date: 20110823
  Receipt Date: 20110809
  Transmission Date: 20111222
  Serious: Yes (Hospitalization, Other)
  Sender: FDA-Public Use
  Company Number: US-CELGENEUS-163-21660-11081229

PATIENT

DRUGS (2)
  1. LAPATINIB [Suspect]
     Dosage: 1,00MG/D IN TWICE DAILY DOSING; SUBSEQUENT DOSE; LEVEL 1, 1,500MG/D; LEVEL 2 2,00MG/D; LEVEL 3, 2,75
     Route: 048
  2. ABRAXANE [Suspect]
     Dosage: 100 MILLIGRAM/SQ. METER
     Route: 041

REACTIONS (10)
  - DECREASED APPETITE [None]
  - ANAEMIA [None]
  - ALOPECIA [None]
  - FATIGUE [None]
  - RASH [None]
  - DERMATITIS ACNEIFORM [None]
  - NAIL DISORDER [None]
  - PRESYNCOPE [None]
  - NEUROPATHY PERIPHERAL [None]
  - ARTHRALGIA [None]
